FAERS Safety Report 9106142 (Version 1)
Quarter: 2013Q1

REPORT INFORMATION
  Report Type: Report from Study
  Country: DE (occurrence: DE)
  Receive Date: 20130221
  Receipt Date: 20130221
  Transmission Date: 20140127
  Serious: Yes (Hospitalization)
  Sender: FDA-Public Use
  Company Number: DE-ABBOTT-13P-062-1050535-00

PATIENT
  Age: 88 None
  Sex: Female
  Weight: 59.5 kg

DRUGS (12)
  1. ZEMPLAR [Suspect]
     Indication: HYPERPARATHYROIDISM SECONDARY
     Route: 048
     Dates: start: 20120601
  2. MARCUMAR [Suspect]
     Indication: ATRIAL FIBRILLATION
     Dates: start: 20080507
  3. IRON [Concomitant]
     Indication: PRODUCT USED FOR UNKNOWN INDICATION
     Route: 042
     Dates: start: 20111024, end: 20120708
  4. IRON [Concomitant]
     Route: 042
     Dates: start: 20120709
  5. ABSEAMED [Concomitant]
     Indication: PRODUCT USED FOR UNKNOWN INDICATION
     Route: 042
     Dates: start: 20111024, end: 20121122
  6. ABSEAMED [Concomitant]
     Route: 042
     Dates: start: 20121123
  7. BISOPROLOL [Concomitant]
     Indication: PRODUCT USED FOR UNKNOWN INDICATION
     Dosage: 0.5/1DAY
     Route: 048
     Dates: start: 20030526
  8. FURORESE [Concomitant]
     Indication: PRODUCT USED FOR UNKNOWN INDICATION
     Route: 048
     Dates: start: 20100526, end: 20120828
  9. FURORESE [Concomitant]
     Route: 048
     Dates: start: 20120829
  10. OMEPRAZOLE [Concomitant]
     Indication: PRODUCT USED FOR UNKNOWN INDICATION
     Route: 048
     Dates: start: 20071001
  11. BONDIOL [Concomitant]
     Indication: PRODUCT USED FOR UNKNOWN INDICATION
     Route: 048
     Dates: end: 20120810
  12. BONDIOL [Concomitant]
     Route: 048
     Dates: start: 20121112

REACTIONS (9)
  - Cellulitis [Recovered/Resolved]
  - Haemorrhage [Recovered/Resolved]
  - Cystitis [Recovered/Resolved]
  - Necrosis [Not Recovered/Not Resolved]
  - Skin injury [Not Recovered/Not Resolved]
  - Skin induration [Not Recovered/Not Resolved]
  - Contusion [Recovered/Resolved]
  - Contusion [Recovered/Resolved]
  - Overdose [Recovered/Resolved]
